FAERS Safety Report 8949767 (Version 1)
Quarter: 2012Q4

REPORT INFORMATION
  Report Type: 
  Country: FI (occurrence: FI)
  Receive Date: 20121206
  Receipt Date: 20121206
  Transmission Date: 20130627
  Serious: Yes (Life-Threatening)
  Sender: FDA-Public Use
  Company Number: FI-ASTRAZENECA-2012SE91161

PATIENT
  Age: 29203 Day
  Sex: Female

DRUGS (20)
  1. BRILIQUE [Suspect]
     Route: 048
     Dates: start: 20120606, end: 20121119
  2. GALVUS [Concomitant]
     Indication: DIABETES MELLITUS
     Route: 048
  3. LANTUS [Concomitant]
     Indication: DIABETES MELLITUS
     Route: 058
  4. SOMAC [Concomitant]
     Route: 048
  5. VAGIFEM [Concomitant]
     Route: 067
  6. KALCIPOS [Concomitant]
     Route: 048
  7. ORMOX [Concomitant]
     Route: 048
  8. BISOPROLOL RATIOPHARM [Concomitant]
     Route: 048
  9. ATORVASTATIN ORION [Concomitant]
     Indication: HYPERCHOLESTEROLAEMIA
     Route: 048
  10. MIRTAZAPIN ORION [Concomitant]
     Route: 048
  11. VESIX [Concomitant]
     Route: 048
  12. PRIMASPAN [Concomitant]
     Route: 048
  13. KALEORID [Concomitant]
     Indication: HYPOKALAEMIA
     Route: 048
  14. TENOX [Concomitant]
     Route: 048
  15. PARA-TABS [Concomitant]
     Indication: PAIN
     Route: 048
  16. VOLTAREN EMULGEL [Concomitant]
     Indication: PAIN
     Route: 061
  17. TARGINIQ [Concomitant]
     Indication: PAIN
     Route: 048
  18. AIROMIR [Concomitant]
     Indication: DYSPNOEA
     Dosage: AS NEEDED
     Route: 055
  19. NITRO [Concomitant]
     Indication: CHEST PAIN
     Dosage: AS NEEDED
     Route: 060
  20. NOVORAPID [Concomitant]
     Indication: DIABETES MELLITUS
     Dosage: AS NEEDED
     Route: 058

REACTIONS (4)
  - Haemoglobin decreased [Unknown]
  - Flank pain [Unknown]
  - Urinary bladder haemorrhage [Recovered/Resolved]
  - Bladder tamponade [Unknown]
